FAERS Safety Report 12791900 (Version 1)
Quarter: 2016Q3

REPORT INFORMATION
  Report Type: Spontaneous
  Country: US (occurrence: US)
  Receive Date: 20160929
  Receipt Date: 20160929
  Transmission Date: 20161109
  Serious: Yes (Death)
  Sender: FDA-Public Use
  Company Number: US-PFIZER INC-2016447783

PATIENT

DRUGS (1)
  1. PHYTOMENADIONE [Suspect]
     Active Substance: PHYTONADIONE
     Dosage: UNK
     Route: 042

REACTIONS (1)
  - Death [Fatal]
